FAERS Safety Report 19677152 (Version 1)
Quarter: 2021Q3

REPORT INFORMATION
  Report Type: Spontaneous
  Country: US (occurrence: US)
  Receive Date: 20210809
  Receipt Date: 20210809
  Transmission Date: 20211014
  Serious: Yes (Life-Threatening, Hospitalization, Other)
  Sender: FDA-Public Use
  Company Number: US-ACCORD-234887

PATIENT
  Age: 58 Year
  Sex: Male

DRUGS (6)
  1. LORAZEPAM. [Interacting]
     Active Substance: LORAZEPAM
     Indication: NEUROLEPTIC MALIGNANT SYNDROME
     Dosage: 2 MG QD FOR NMS
  2. FLUPHENAZINE [Concomitant]
     Active Substance: FLUPHENAZINE
  3. CARIPRAZINE [Concomitant]
     Active Substance: CARIPRAZINE
  4. MIRTAZAPINE. [Concomitant]
     Active Substance: MIRTAZAPINE
     Indication: INCREASED APPETITE
  5. CLOZAPINE. [Suspect]
     Active Substance: CLOZAPINE
     Indication: SCHIZOPHRENIA
     Dosage: 150 MG, TITRATED DOWN TO 100 MG
  6. DANTROLENE/DANTROLENE SODIUM [Concomitant]
     Active Substance: DANTROLENE
     Indication: NEUROLEPTIC MALIGNANT SYNDROME
     Dosage: 25 MG QD

REACTIONS (2)
  - Drug interaction [Unknown]
  - Malignant catatonia [Recovered/Resolved]
